FAERS Safety Report 10750807 (Version 1)
Quarter: 2015Q1

REPORT INFORMATION
  Report Type: Spontaneous
  Country: US (occurrence: US)
  Receive Date: 20150130
  Receipt Date: 20150130
  Transmission Date: 20150721
  Serious: Yes (Other)
  Sender: FDA-Public Use
  Company Number: US-ROCHE-1522406

PATIENT
  Age: 75 Year
  Sex: Female

DRUGS (2)
  1. AVASTIN [Suspect]
     Active Substance: BEVACIZUMAB
     Dosage: OS, 1.25 MG/0.05 ML. SUBSEQUENTLY RECEIVED BEVACIZUMAB ON 09/NOV/2009 OS, 19/NOV/2009 OD, 09/NOV/200
     Route: 050
     Dates: start: 20080122
  2. AVASTIN [Suspect]
     Active Substance: BEVACIZUMAB
     Indication: AGE-RELATED MACULAR DEGENERATION
     Route: 050
     Dates: start: 20110708

REACTIONS (9)
  - Suspected transmission of an infectious agent via product [Unknown]
  - Vitreous detachment [Unknown]
  - Eye injury [Unknown]
  - Anxiety [Unknown]
  - Cataract [Unknown]
  - Endophthalmitis [Unknown]
  - Retinal oedema [Unknown]
  - Blindness [Unknown]
  - Product use issue [Unknown]

NARRATIVE: CASE EVENT DATE: 201107
